FAERS Safety Report 7218077-7 (Version None)
Quarter: 2010Q4

REPORT INFORMATION
  Report Type: 
  Country: None (occurrence: None)
  Receive Date: 20101230
  Receipt Date: 20101218
  Transmission Date: 20110411
  Serious: Yes (Other)
  Sender: FDA-Public Use
  Company Number: 2010S1021100

PATIENT
  Age: 27 Year
  Sex: Male
  Weight: 86.2 kg

DRUGS (10)
  1. SUBUTEX [Suspect]
     Indication: DRUG LEVEL
     Dosage: 8 MG; ONCE; SUBLINGUAL
     Route: 060
     Dates: start: 20101009, end: 20101009
  2. NALTREXONE [Concomitant]
  3. DEXMETHYLPHENIDATE HCL [Concomitant]
  4. MORPHINE SULFATE [Concomitant]
  5. CARBIDOPA AND LEVODOPA [Concomitant]
  6. FENTANYL [Concomitant]
  7. BUPRENORPHINE [Concomitant]
  8. BUPRENORPHINE W/NALOXONE [Concomitant]
  9. NIFEDIPINE [Concomitant]
  10. DOXYCYCLINE HYCLATE [Concomitant]

REACTIONS (2)
  - METASTASES TO LYMPH NODES [None]
  - TESTICULAR CANCER METASTATIC [None]
